FAERS Safety Report 5774962-4 (Version None)
Quarter: 2008Q2

REPORT INFORMATION
  Report Type: 
  Country: None (occurrence: None)
  Receive Date: 20080617
  Receipt Date: 20080602
  Transmission Date: 20081010
  Serious: Yes (Life-Threatening, Hospitalization, Other)
  Sender: FDA-Public Use
  Company Number: GB-BAYER-200611007BNE

PATIENT
  Age: 38 Year
  Sex: Female

DRUGS (4)
  1. NIFEDIPINE [Suspect]
     Indication: TOCOLYSIS
     Dosage: TOTAL DAILY DOSE: 60 MG
     Route: 048
  2. NIFEDIPINE [Suspect]
     Route: 048
  3. BETAMETHASONE [Suspect]
     Indication: THREATENED LABOUR
     Route: 030
  4. GENERAL ANAESTHESIA [Suspect]
     Indication: CARDIOVERSION

REACTIONS (5)
  - ATRIAL FIBRILLATION [None]
  - CHEST PAIN [None]
  - HEART RATE IRREGULAR [None]
  - HYPOTENSION [None]
  - PALPITATIONS [None]
